FAERS Safety Report 6835834-7 (Version None)
Quarter: 2010Q3

REPORT INFORMATION
  Report Type: 
  Country: None (occurrence: None)
  Receive Date: 20100712
  Receipt Date: 20100712
  Transmission Date: 20110219
  Serious: No
  Sender: FDA-Public Use
  Company Number: None

PATIENT
  Age: 33 Year
  Sex: Female
  Weight: 74.3899 kg

DRUGS (1)
  1. YAZ [Suspect]
     Indication: CONTRACEPTION
     Dosage: ONE PILL DAILY EVERY DAY PO
     Route: 048
     Dates: start: 20071110, end: 20080415

REACTIONS (4)
  - ABDOMINAL PAIN UPPER [None]
  - CHOLECYSTITIS [None]
  - INCISIONAL HERNIA [None]
  - PAIN [None]
